FAERS Safety Report 8025981-9 (Version None)
Quarter: 2012Q1

REPORT INFORMATION
  Report Type: 
  Country: None (occurrence: None)
  Receive Date: 20120105
  Receipt Date: 20111017
  Transmission Date: 20120608
  Serious: No
  Sender: FDA-Public Use
  Company Number: US-ABBOTT-11P-163-0852110-00

PATIENT
  Sex: Female
  Weight: 54.48 kg

DRUGS (2)
  1. CYTOMEL [Concomitant]
     Indication: TRI-IODOTHYRONINE DECREASED
  2. SYNTHROID [Suspect]
     Indication: HYPOTHYROIDISM
     Dates: start: 20020101, end: 20110910

REACTIONS (3)
  - PRURITUS [None]
  - RASH [None]
  - SKIN DISORDER [None]
